FAERS Safety Report 21249886 (Version 4)
Quarter: 2024Q1

REPORT INFORMATION
  Report Type: Spontaneous
  Country: BR (occurrence: BR)
  Receive Date: 20220824
  Receipt Date: 20240321
  Transmission Date: 20240410
  Serious: Yes (Hospitalization, Other)
  Sender: FDA-Public Use
  Company Number: BR-GLAXOSMITHKLINE-BR2022AMR121724

PATIENT

DRUGS (12)
  1. BENLYSTA [Suspect]
     Active Substance: BELIMUMAB
     Indication: Systemic lupus erythematosus
     Dosage: 200 MG, EVERY 7 DAYS
     Dates: start: 20211223
  2. BENLYSTA [Suspect]
     Active Substance: BELIMUMAB
     Indication: Systemic lupus erythematosus
     Dosage: 400 MG ( 1 X 400 MG)
     Route: 042
     Dates: start: 20211223
  3. BENLYSTA [Suspect]
     Active Substance: BELIMUMAB
     Dosage: UNK
     Route: 042
     Dates: start: 202208
  4. MYCOPHENOLATE MOFETIL [Concomitant]
     Active Substance: MYCOPHENOLATE MOFETIL
     Indication: Systemic lupus erythematosus
     Dosage: 3 DF
  5. HYDROXYCHLOROQUINE SULFATE [Concomitant]
     Active Substance: HYDROXYCHLOROQUINE SULFATE
     Indication: Systemic lupus erythematosus
     Dosage: UNK
  6. PREDNISONE [Concomitant]
     Active Substance: PREDNISONE
     Indication: Systemic lupus erythematosus
     Dosage: 15 MG, QD
  7. Famox [Concomitant]
     Indication: Ehlers-Danlos syndrome
     Dosage: 20 MG, BID
  8. BILASTINE [Concomitant]
     Active Substance: BILASTINE
     Indication: Ehlers-Danlos syndrome
     Dosage: 20 MG, BID
  9. IVABRADINE [Concomitant]
     Active Substance: IVABRADINE
     Indication: Ehlers-Danlos syndrome
     Dosage: 5 MG, BID
  10. GLIFAGE [Concomitant]
     Active Substance: METFORMIN HYDROCHLORIDE
     Indication: Ehlers-Danlos syndrome
     Dosage: 1 G
  11. EVOGLIPTIN TARTRATE [Concomitant]
     Active Substance: EVOGLIPTIN TARTRATE
     Indication: Ehlers-Danlos syndrome
     Dosage: 5 MG
  12. BACTRIM [Concomitant]
     Active Substance: SULFAMETHOXAZOLE\TRIMETHOPRIM
     Indication: Prophylaxis
     Dosage: UNK, QD

REACTIONS (7)
  - Intussusception [Not Recovered/Not Resolved]
  - Cellulitis [Recovered/Resolved]
  - Colectomy total [Recovered/Resolved]
  - Pain [Recovering/Resolving]
  - Therapy cessation [Unknown]
  - Drug ineffective [Unknown]
  - Inappropriate schedule of product administration [Unknown]

NARRATIVE: CASE EVENT DATE: 20220701
